FAERS Safety Report 13122258 (Version 3)
Quarter: 2017Q1

REPORT INFORMATION
  Report Type: Spontaneous
  Country: US (occurrence: US)
  Receive Date: 20170117
  Receipt Date: 20170301
  Transmission Date: 20170428
  Serious: No
  Sender: FDA-Public Use
  Company Number: US-PFIZER INC-2017019967

PATIENT
  Age: 22 Year
  Sex: Female
  Weight: 104.7 kg

DRUGS (1)
  1. LIDOCAINE HCL [Suspect]
     Active Substance: LIDOCAINE HYDROCHLORIDE
     Indication: ANAESTHESIA
     Dosage: MAY HAVE USED ABOUT HALF OF THE VIAL, INJECTABLE, NOT SURE ROUTE MAYBE IN SKIN, ONE DOSE
     Dates: start: 20170111, end: 20170111

REACTIONS (1)
  - Drug ineffective [Unknown]

NARRATIVE: CASE EVENT DATE: 20170111
